FAERS Safety Report 23238670 (Version 2)
Quarter: 2023Q4

REPORT INFORMATION
  Report Type: Spontaneous
  Country: US (occurrence: US)
  Receive Date: 20231129
  Receipt Date: 20231214
  Transmission Date: 20240109
  Serious: Yes (Other)
  Sender: FDA-Public Use
  Company Number: US-ORGANON-O2310USA002254

PATIENT
  Age: 24 Year
  Sex: Female
  Weight: 120.18 kg

DRUGS (5)
  1. NEXPLANON [Suspect]
     Active Substance: ETONOGESTREL
     Indication: Contraception
     Dosage: 1 IMPLANT OF 68 MG IN RIGHT UPPER ARM (ONCE)
     Route: 058
     Dates: start: 20230309, end: 20231003
  2. NEXPLANON [Suspect]
     Active Substance: ETONOGESTREL
     Indication: Contraception
  3. CETIRIZINE HYDROCHLORIDE [Concomitant]
     Active Substance: CETIRIZINE HYDROCHLORIDE
     Indication: Hypersensitivity
     Dosage: 10 MILLIGRAM
     Route: 048
     Dates: start: 20230525
  4. FLONASE ALLERGY RELIEF [Concomitant]
     Active Substance: FLUTICASONE PROPIONATE
     Indication: Hypersensitivity
     Dosage: 1 SPRAY EACH NOSTRIL (2 SPRAY DAILY)
     Route: 045
     Dates: start: 20230703
  5. MICRONOR [Concomitant]
     Active Substance: NORETHINDRONE
     Indication: Contraception
     Dosage: 1 TABLET
     Route: 048
     Dates: start: 20231003

REACTIONS (3)
  - Device breakage [Recovered/Resolved]
  - Weight increased [Unknown]
  - Wrong technique in product usage process [Unknown]

NARRATIVE: CASE EVENT DATE: 20230707
